FAERS Safety Report 8041930-1 (Version None)
Quarter: 2012Q1

REPORT INFORMATION
  Report Type: 
  Country: None (occurrence: None)
  Receive Date: 20120112
  Receipt Date: 20120106
  Transmission Date: 20120608
  Serious: Yes (Other)
  Sender: FDA-Public Use
  Company Number: PHHY2012FR001564

PATIENT
  Age: 66 Year
  Sex: Female

DRUGS (11)
  1. ONBREZ [Suspect]
     Indication: CHRONIC OBSTRUCTIVE PULMONARY DISEASE
     Dosage: 1 DF, QD
     Dates: start: 20111221, end: 20111223
  2. PLAVIX [Concomitant]
  3. PRAVASTATIN [Concomitant]
  4. EFFEXOR [Concomitant]
     Dosage: 200 MG, DAILY
  5. KETOPROFEN [Concomitant]
  6. LEVOTHYROXINE SODIUM [Concomitant]
  7. XANAX [Concomitant]
  8. ACETAMINOPHEN [Concomitant]
  9. VENTOLIN [Concomitant]
  10. ZOFENIL [Concomitant]
  11. EVISTA [Concomitant]

REACTIONS (5)
  - CHEST PAIN [None]
  - NASOPHARYNGITIS [None]
  - BRONCHITIS [None]
  - MENTAL DISORDER [None]
  - CONCOMITANT DISEASE AGGRAVATED [None]
